FAERS Safety Report 5900464-8 (Version None)
Quarter: 2008Q3

REPORT INFORMATION
  Report Type: 
  Country: None (occurrence: None)
  Receive Date: 20080926
  Receipt Date: 20080916
  Transmission Date: 20090109
  Serious: Yes (Hospitalization)
  Sender: FDA-Public Use
  Company Number: TW-PFIZER INC-2008066726

PATIENT
  Sex: Female
  Weight: 46 kg

DRUGS (16)
  1. SU-011,248 [Suspect]
     Indication: BREAST CANCER
     Route: 048
     Dates: start: 20080531, end: 20080806
  2. SU-011,248 [Suspect]
     Route: 048
     Dates: start: 20080822
  3. STROCAIN [Concomitant]
     Route: 048
     Dates: start: 20080701, end: 20080807
  4. PINAVERIUM [Concomitant]
     Route: 048
     Dates: start: 20080701, end: 20080807
  5. LANSOPRAZOLE [Concomitant]
     Route: 048
     Dates: start: 20080709, end: 20080807
  6. HEPARIN [Concomitant]
     Route: 042
     Dates: start: 20080801, end: 20080801
  7. KETOROLAC TROMETHAMINE [Concomitant]
     Route: 042
     Dates: start: 20080806, end: 20080806
  8. METOCLOPRAMIDE [Concomitant]
     Route: 042
     Dates: start: 20080806, end: 20080806
  9. FAMOTIDINE [Concomitant]
     Route: 042
     Dates: start: 20080806, end: 20080806
  10. MORPHINE HCL ELIXIR [Concomitant]
     Route: 042
     Dates: start: 20080806, end: 20080806
  11. MAGNESIUM OXIDE [Concomitant]
     Route: 048
     Dates: start: 20080806, end: 20080807
  12. PRIMPERAN TAB [Concomitant]
     Route: 048
     Dates: start: 20080806, end: 20080807
  13. SENNOSIDES [Concomitant]
     Route: 048
     Dates: start: 20080806, end: 20080807
  14. SODIUM CHLORIDE [Concomitant]
     Route: 042
     Dates: start: 20080801, end: 20080801
  15. SODIUM CHLORIDE [Concomitant]
     Route: 042
     Dates: start: 20080806, end: 20080806
  16. ANTIMONY POTASSIUM TARTRATE [Concomitant]
     Route: 048
     Dates: start: 20080801, end: 20080808

REACTIONS (1)
  - ILEUS [None]
